FAERS Safety Report 25886708 (Version 2)
Quarter: 2025Q4

REPORT INFORMATION
  Report Type: Spontaneous
  Country: US (occurrence: US)
  Receive Date: 20251006
  Receipt Date: 20251008
  Transmission Date: 20260118
  Serious: Yes (Other)
  Sender: ABBVIE
  Company Number: US-ABBVIE-6487557

PATIENT
  Sex: Male

DRUGS (1)
  1. CREON [Suspect]
     Active Substance: PANCRELIPASE AMYLASE\PANCRELIPASE LIPASE\PANCRELIPASE PROTEASE
     Indication: Pancreatic failure
     Dosage: 3000 UNIT
     Route: 048

REACTIONS (7)
  - Abdominal pain upper [Unknown]
  - Pancreatic fistula [Unknown]
  - Pancreatic failure [Unknown]
  - Dyspepsia [Unknown]
  - Memory impairment [Unknown]
  - Discomfort [Unknown]
  - Type 2 diabetes mellitus [Unknown]

NARRATIVE: CASE EVENT DATE: 19530101
